FAERS Safety Report 7595571-0 (Version None)
Quarter: 2011Q3

REPORT INFORMATION
  Report Type: 
  Country: None (occurrence: None)
  Receive Date: 20110707
  Receipt Date: 20110615
  Transmission Date: 20111222
  Serious: Yes (Congenital Anomaly)
  Sender: FDA-Public Use
  Company Number: US-GLAXOSMITHKLINE-A0932718A

PATIENT
  Sex: Male

DRUGS (1)
  1. PAXIL [Suspect]
     Indication: DEPRESSION
     Route: 064
     Dates: start: 19930601, end: 19940501

REACTIONS (5)
  - MITRAL VALVE INCOMPETENCE [None]
  - MITRAL VALVE DISEASE [None]
  - TRICUSPID VALVE INCOMPETENCE [None]
  - ATRIAL SEPTAL DEFECT [None]
  - MATERNAL EXPOSURE DURING PREGNANCY [None]
